FAERS Safety Report 19966246 (Version 1)
Quarter: 2021Q4

REPORT INFORMATION
  Report Type: Spontaneous
  Country: RU (occurrence: RU)
  Receive Date: 20211019
  Receipt Date: 20211019
  Transmission Date: 20220303
  Serious: Yes (Other)
  Sender: FDA-Public Use
  Company Number: RU-ROCHE-2937107

PATIENT
  Age: 51 Year
  Sex: Female

DRUGS (2)
  1. ALECTINIB [Suspect]
     Active Substance: ALECTINIB
     Indication: Lung carcinoma cell type unspecified stage IV
     Route: 065
     Dates: start: 20200129
  2. ALECTINIB [Suspect]
     Active Substance: ALECTINIB
     Indication: Metastases to bone

REACTIONS (2)
  - Hepatitis toxic [Unknown]
  - Asthenia [Unknown]

NARRATIVE: CASE EVENT DATE: 20200901
